FAERS Safety Report 5095495-7 (Version None)
Quarter: 2006Q3

REPORT INFORMATION
  Report Type: 
  Country: None (occurrence: None)
  Receive Date: 20060901
  Receipt Date: 20060901
  Transmission Date: 20061208
  Serious: No
  Sender: FDA-Public Use
  Company Number: None

PATIENT
  Sex: Male
  Weight: 107.0489 kg

DRUGS (1)
  1. VISIPAQUE [Suspect]
     Indication: CATHETERISATION CARDIAC
     Dosage: 116 ML IC

REACTIONS (3)
  - FLUSHING [None]
  - POST PROCEDURAL COMPLICATION [None]
  - PRURITUS [None]
